FAERS Safety Report 21882991 (Version 1)
Quarter: 2023Q1

REPORT INFORMATION
  Report Type: Spontaneous
  Country: GB (occurrence: GB)
  Receive Date: 20230119
  Receipt Date: 20230119
  Transmission Date: 20230417
  Serious: Yes (Other)
  Sender: FDA-Public Use
  Company Number: GB-ALXN-A202205529

PATIENT
  Sex: Male

DRUGS (7)
  1. CIPROFLOXACIN [Suspect]
     Active Substance: CIPROFLOXACIN
     Indication: Pseudomonas infection
     Dosage: UNK
     Route: 065
     Dates: start: 20220430
  2. CIPROFLOXACIN [Suspect]
     Active Substance: CIPROFLOXACIN
     Indication: Catheter site infection
  3. SOLIRIS [Suspect]
     Active Substance: ECULIZUMAB
     Indication: Atypical haemolytic uraemic syndrome
     Dosage: 600 MG, Q2W
     Route: 042
     Dates: start: 20160607, end: 20201201
  4. SOLIRIS [Suspect]
     Active Substance: ECULIZUMAB
     Dosage: 900 MG, Q2W
     Route: 042
     Dates: start: 20201215, end: 20211102
  5. SOLIRIS [Suspect]
     Active Substance: ECULIZUMAB
     Dosage: 1200 MG, Q2W
     Route: 042
     Dates: start: 20211116
  6. SOLIRIS [Suspect]
     Active Substance: ECULIZUMAB
     Dosage: UNK
     Route: 065
     Dates: start: 20120103
  7. ERYTHROMYCIN [Concomitant]
     Active Substance: ERYTHROMYCIN
     Indication: Product used for unknown indication

REACTIONS (14)
  - Pseudomonas infection [Not Recovered/Not Resolved]
  - Mouth ulceration [Unknown]
  - Respiratory rate decreased [Unknown]
  - Pain [Recovered/Resolved]
  - Device infusion issue [Unknown]
  - Catheter site infection [Not Recovered/Not Resolved]
  - Catheter site cellulitis [Not Recovered/Not Resolved]
  - Fatigue [Recovered/Resolved]
  - Catheter site erythema [Recovering/Resolving]
  - Catheter site scab [Recovering/Resolving]
  - Suspected COVID-19 [Unknown]
  - Pyrexia [Unknown]
  - Influenza [Unknown]
  - Cough [Unknown]

NARRATIVE: CASE EVENT DATE: 20220429
